FAERS Safety Report 9508733 (Version 1)
Quarter: 2013Q3

REPORT INFORMATION
  Report Type: Report from Study
  Country: BR (occurrence: BR)
  Receive Date: 20130909
  Receipt Date: 20130909
  Transmission Date: 20140515
  Serious: Yes (Hospitalization, Other)
  Sender: FDA-Public Use
  Company Number: ALCN2013BR003508

PATIENT
  Age: 71 Year
  Sex: Female
  Weight: 94 kg

DRUGS (5)
  1. TRAVATAN [Suspect]
     Indication: INTRAOCULAR PRESSURE INCREASED
     Route: 047
  2. ATENOLOL [Concomitant]
     Route: 048
  3. SIMVASTATINA [Concomitant]
     Route: 048
  4. HYDROCHLOROTHIAZIDE [Concomitant]
     Route: 048
  5. LOSARTANA [Concomitant]
     Route: 048

REACTIONS (4)
  - Cardiac operation [Recovered/Resolved]
  - Cerebrovascular accident [Recovered/Resolved]
  - Blood pressure increased [Not Recovered/Not Resolved]
  - Local swelling [Unknown]
